FAERS Safety Report 8900657 (Version 1)
Quarter: 2012Q4

REPORT INFORMATION
  Report Type: 
  Country: US (occurrence: US)
  Receive Date: 20121109
  Receipt Date: 20121109
  Transmission Date: 20130627
  Serious: Yes (Other)
  Sender: FDA-Public Use
  Company Number: US-INCYTE CORPORATION-2012IN002228

PATIENT
  Sex: Female

DRUGS (14)
  1. JAKAFI [Suspect]
     Indication: MYELOFIBROSIS
     Dosage: 20 mg, bid
     Route: 048
     Dates: end: 201204
  2. ACYCLOVIR [Concomitant]
     Dosage: 800 mg, bid
  3. AMLODIPINE [Concomitant]
     Dosage: 5 mg, qd
  4. DULOXETINE [Concomitant]
     Dosage: 30 mg, qd
  5. ERGOCALCIFEROL [Concomitant]
     Dosage: 50000 IU, Tuesday and Thursday
  6. FLUCONAZOLE [Concomitant]
     Dosage: 200mg 2 tablets qd
  7. FOLIC ACID [Concomitant]
     Dosage: 1 mg, qd
  8. LANSOPRAZOLE [Concomitant]
     Dosage: 30 mg, qd
  9. SLO-MAG [Concomitant]
     Dosage: 71.5 mg, 6 tablets daily
  10. MULTIVITAMINS, PLAIN [Concomitant]
  11. PEN-VEE-K [Concomitant]
     Dosage: 500 mg, bid
  12. COMPAZINE [Concomitant]
     Dosage: 10 mg, q 6 hours, prn
  13. TACROLIMUS [Concomitant]
     Dosage: 1 mg, bid
  14. PENTAMIDINE [Concomitant]
     Route: 042

REACTIONS (2)
  - Stem cell transplant [Unknown]
  - Blood count abnormal [Unknown]
